FAERS Safety Report 20721913 (Version 1)
Quarter: 2022Q2

REPORT INFORMATION
  Report Type: Spontaneous
  Country: US (occurrence: US)
  Receive Date: 20220418
  Receipt Date: 20220418
  Transmission Date: 20220721
  Serious: No
  Sender: FDA-Public Use
  Company Number: US-PFIZER INC-202200323425

PATIENT
  Sex: Male

DRUGS (1)
  1. NORVASC [Suspect]
     Active Substance: AMLODIPINE BESYLATE
     Dosage: 5 MG (30 DAYS SUPPLY)

REACTIONS (4)
  - Anxiety [Unknown]
  - Muscle spasms [Unknown]
  - Muscle twitching [Unknown]
  - Malaise [Unknown]
